FAERS Safety Report 4540061-2 (Version None)
Quarter: 2004Q4

REPORT INFORMATION
  Report Type: 
  Country: None (occurrence: None)
  Receive Date: 20041223
  Receipt Date: 20041208
  Transmission Date: 20050328
  Serious: Yes (Hospitalization)
  Sender: FDA-Public Use
  Company Number: 2004110287

PATIENT
  Age: 79 Year
  Sex: Female
  Weight: 58.9676 kg

DRUGS (3)
  1. DETROL LA [Suspect]
     Indication: HYPERTONIC BLADDER
     Dosage: 4 MG (4 MG, QD), ORAL
     Route: 048
     Dates: start: 20041101
  2. LEVOTHYROXINE SODIUM [Concomitant]
  3. BCG ORGANISMS-METHANOL EXTRACTION RESIDUE (BCG ORGANISMS-METHANOL EXTR [Concomitant]

REACTIONS (7)
  - ASTHENIA [None]
  - CYSTITIS [None]
  - DIZZINESS [None]
  - DRY MOUTH [None]
  - DYSGEUSIA [None]
  - POLLAKIURIA [None]
  - SEPSIS [None]
